FAERS Safety Report 7993952-4 (Version None)
Quarter: 2011Q4

REPORT INFORMATION
  Report Type: 
  Country: None (occurrence: None)
  Receive Date: 20111215
  Receipt Date: 20111201
  Transmission Date: 20120403
  Serious: Yes (Other)
  Sender: FDA-Public Use
  Company Number: 1000026149

PATIENT
  Sex: Male
  Weight: 45 kg

DRUGS (8)
  1. PREDNISONE TAB [Concomitant]
  2. ZOSTEX (BRIVUDINE) [Concomitant]
  3. ROFLUMILAST (ROFLUMILAST)  (TABLETS) [Suspect]
     Indication: CHRONIC OBSTRUCTIVE PULMONARY DISEASE
     Dosage: 500 MCG, ORAL
     Route: 048
     Dates: start: 20110209, end: 20110430
  4. SYMBICORT [Concomitant]
  5. IBUPROFEN [Concomitant]
  6. CARBAMAZEPINE [Concomitant]
  7. SPIRIVA [Concomitant]
  8. BERODUAL (DUOVENT) [Concomitant]

REACTIONS (4)
  - DYSPHAGIA [None]
  - DECREASED APPETITE [None]
  - ABDOMINAL PAIN [None]
  - WEIGHT DECREASED [None]
